FAERS Safety Report 5645527-X (Version None)
Quarter: 2008Q1

REPORT INFORMATION
  Report Type: 
  Country: None (occurrence: None)
  Receive Date: 20080229
  Receipt Date: 20080222
  Transmission Date: 20080703
  Serious: Yes (Death)
  Sender: FDA-Public Use
  Company Number: FR-SANOFI-SYNTHELABO-A02200800692

PATIENT
  Sex: Female

DRUGS (1)
  1. ELOXATIN [Suspect]
     Indication: PERITONEAL MESOTHELIOMA MALIGNANT
     Route: 042
     Dates: start: 20071118

REACTIONS (1)
  - SHOCK HAEMORRHAGIC [None]
